FAERS Safety Report 7417810-9 (Version None)
Quarter: 2011Q2

REPORT INFORMATION
  Report Type: 
  Country: None (occurrence: None)
  Receive Date: 20110415
  Receipt Date: 20110317
  Transmission Date: 20111010
  Serious: Yes (Hospitalization, Other)
  Sender: FDA-Public Use
  Company Number: US-BAYER-201024691NA

PATIENT
  Age: 50 Year
  Sex: Female
  Weight: 90.703 kg

DRUGS (6)
  1. FAMVIR [Concomitant]
  2. VITAMIN D [Concomitant]
     Dosage: 1000 IU, UNK
  3. YASMIN [Suspect]
     Indication: DYSFUNCTIONAL UTERINE BLEEDING
     Dosage: UNK
     Dates: start: 20030901, end: 20070801
  4. CALCIUM [Concomitant]
     Dosage: 500 MG, UNK
  5. MEDROL [Concomitant]
  6. MULTI-VITAMIN [Concomitant]

REACTIONS (4)
  - FATIGUE [None]
  - SPEECH DISORDER [None]
  - CEREBROVASCULAR ACCIDENT [None]
  - ISCHAEMIC STROKE [None]
